FAERS Safety Report 17756434 (Version 1)
Quarter: 2020Q2

REPORT INFORMATION
  Report Type: Spontaneous
  Country: FR (occurrence: FR)
  Receive Date: 20200507
  Receipt Date: 20200507
  Transmission Date: 20200714
  Serious: Yes (Hospitalization)
  Sender: FDA-Public Use
  Company Number: FR-CADILA HEALTHCARE LIMITED-FR-ZYDUS-022674

PATIENT

DRUGS (6)
  1. OMEPRAZOLE. [Suspect]
     Active Substance: OMEPRAZOLE
     Indication: GASTROOESOPHAGEAL REFLUX DISEASE
     Dosage: 1 DOSAGE FORM,(INTERVAL :1 DAYS)
     Route: 048
     Dates: start: 20180203, end: 20180206
  2. OFLOCET [Suspect]
     Active Substance: OFLOXACIN
     Indication: OTORRHOEA
     Dosage: 2 DOSAGE FORM,1 DOSE MORNING AND EVENING IN THE EARS,(INTERVAL :1 DAYS)
     Route: 001
     Dates: start: 20180203
  3. FLANID [Suspect]
     Active Substance: TIAPROFENIC ACID
     Indication: OTORRHOEA
     Dosage: 3 DOSAGE FORM,(INTERVAL :1 DAYS)
     Route: 048
     Dates: start: 20180203, end: 20180206
  4. PIVALONE UNSPECIFIED [Suspect]
     Active Substance: TIXOCORTOL PIVALATE
     Indication: NASOPHARYNGITIS
     Route: 045
     Dates: start: 20180203
  5. ZOMIGORO [Concomitant]
     Active Substance: ZOLMITRIPTAN
     Indication: MIGRAINE
     Dosage: 1 DOSAGE FORM
     Route: 048
     Dates: start: 2015
  6. DIMETANE SANS SUCRE [Suspect]
     Active Substance: BROMPHENIRAMINE MALEATE\PHOLCODINE
     Indication: COUGH
     Dosage: (INTERVAL :1 DAYS)
     Route: 048
     Dates: start: 20180203

REACTIONS (2)
  - Rash maculo-papular [Recovering/Resolving]
  - Oedema peripheral [Recovering/Resolving]

NARRATIVE: CASE EVENT DATE: 20180206
